FAERS Safety Report 24052363 (Version 5)
Quarter: 2024Q4

REPORT INFORMATION
  Report Type: Report from Study
  Country: US (occurrence: US)
  Receive Date: 20240704
  Receipt Date: 20241015
  Transmission Date: 20250114
  Serious: Yes (Hospitalization)
  Sender: ABBVIE
  Company Number: US-ABBVIE-5825298

PATIENT
  Sex: Female
  Weight: 42 kg

DRUGS (2)
  1. VENCLEXTA [Suspect]
     Active Substance: VENETOCLAX
     Indication: Endometrial cancer
     Dosage: FORM STRENGTH: 100 MILLIGRAMS?LAST ADMIN DATE: 2024
     Route: 048
     Dates: start: 202406
  2. VENCLEXTA [Suspect]
     Active Substance: VENETOCLAX
     Indication: Endometrial cancer
     Dosage: DRUG START DATE: 2024
     Route: 048

REACTIONS (8)
  - Platelet count decreased [Recovering/Resolving]
  - Blood sodium decreased [Recovering/Resolving]
  - Gait disturbance [Recovering/Resolving]
  - Decreased appetite [Recovering/Resolving]
  - Taste disorder [Recovering/Resolving]
  - Weight decreased [Recovering/Resolving]
  - Muscular weakness [Recovering/Resolving]
  - Fatigue [Unknown]

NARRATIVE: CASE EVENT DATE: 20240101
